FAERS Safety Report 10236889 (Version 3)
Quarter: 2014Q2

REPORT INFORMATION
  Report Type: Spontaneous
  Country: FR (occurrence: FR)
  Receive Date: 20140613
  Receipt Date: 20140618
  Transmission Date: 20141212
  Serious: Yes (Death, Hospitalization, Other)
  Sender: FDA-Public Use
  Company Number: FR-PFIZER INC-2014161862

PATIENT
  Age: 84 Year
  Sex: Male

DRUGS (12)
  1. EUPANTOL [Suspect]
     Dosage: 20 MG, DAILY
     Route: 048
     Dates: end: 20140425
  2. PERFALGAN [Suspect]
     Dosage: UNK
     Route: 042
     Dates: start: 20140410, end: 20140417
  3. PERFALGAN [Suspect]
     Dosage: UNK
     Route: 048
     Dates: start: 20140418
  4. CEFAZOLIN [Suspect]
     Dosage: 3 G, DAILY
     Route: 042
     Dates: start: 20140415, end: 20140417
  5. SECTRAL [Concomitant]
     Dosage: UNK
  6. CORVASAL [Concomitant]
     Dosage: UNK
  7. LOXEN [Concomitant]
     Dosage: LP 50
  8. TAHOR [Concomitant]
     Dosage: UNK
  9. PREVISCAN [Concomitant]
     Dosage: UNK
     Dates: end: 20140410
  10. LASILIX [Concomitant]
     Dosage: UNK
  11. LOVENOX [Concomitant]
     Dosage: UNK
  12. TOPALGIC [Concomitant]
     Dosage: UNK

REACTIONS (3)
  - Mucosal inflammation [Fatal]
  - Agranulocytosis [Fatal]
  - Femur fracture [Unknown]
